FAERS Safety Report 5188827-2 (Version None)
Quarter: 2006Q4

REPORT INFORMATION
  Report Type: 
  Country: None (occurrence: None)
  Receive Date: 20061215
  Receipt Date: 20061130
  Transmission Date: 20070319
  Serious: Yes (Death)
  Sender: FDA-Public Use
  Company Number: 2006S1011170

PATIENT
  Age: 47 Year
  Sex: Male
  Weight: 61 kg

DRUGS (2)
  1. INDOMETHACIN [Suspect]
     Indication: ARTHRALGIA
     Dosage: PO
     Route: 048
     Dates: start: 20061106, end: 20061106
  2. OXYCODONE HCL [Concomitant]

REACTIONS (1)
  - ANAPHYLACTIC REACTION [None]
